FAERS Safety Report 17461029 (Version 1)
Quarter: 2020Q1

REPORT INFORMATION
  Report Type: Spontaneous
  Country: US (occurrence: US)
  Receive Date: 20200213
  Receipt Date: 20200213
  Transmission Date: 20200409
  Serious: No
  Sender: FDA-Public Use
  Company Number: None

PATIENT
  Age: 77 Year
  Sex: Female
  Weight: 96.62 kg

DRUGS (1)
  1. BENLYSTA [Suspect]
     Active Substance: BELIMUMAB
     Indication: SYSTEMIC LUPUS ERYTHEMATOSUS
     Dosage: ?          OTHER ROUTE:INFUSE?
     Dates: start: 201901

REACTIONS (6)
  - Fall [None]
  - Head injury [None]
  - Cardiac pacemaker insertion [None]
  - Coma [None]
  - Balance disorder [None]
  - Heart rate decreased [None]
